FAERS Safety Report 6871567-9 (Version None)
Quarter: 2010Q3

REPORT INFORMATION
  Report Type: 
  Country: None (occurrence: None)
  Receive Date: 20100723
  Receipt Date: 20100720
  Transmission Date: 20110219
  Serious: Yes (Death, Hospitalization, Other)
  Sender: FDA-Public Use
  Company Number: PHHY2010JP46474

PATIENT
  Age: 62 Year
  Sex: Female

DRUGS (2)
  1. CYCLOSPORINE [Suspect]
     Indication: ANGIOIMMUNOBLASTIC T-CELL LYMPHOMA
     Dosage: 100 MG/DAY
     Route: 048
  2. PREDNISOLONE [Suspect]
     Indication: ANGIOIMMUNOBLASTIC T-CELL LYMPHOMA
     Dosage: 15 MG/DAY
     Route: 048

REACTIONS (6)
  - HISTIOCYTOSIS HAEMATOPHAGIC [None]
  - LYMPHOMA [None]
  - MULTI-ORGAN FAILURE [None]
  - SEPSIS [None]
  - THROMBOTIC THROMBOCYTOPENIC PURPURA [None]
  - TUMOUR ASSOCIATED FEVER [None]
